FAERS Safety Report 14215247 (Version 1)
Quarter: 2017Q4

REPORT INFORMATION
  Report Type: Spontaneous
  Country: US (occurrence: US)
  Receive Date: 20171122
  Receipt Date: 20171122
  Transmission Date: 20180321
  Serious: Yes (Other)
  Sender: FDA-Public Use
  Company Number: US-JNJFOC-20170924472

PATIENT
  Age: 90 Year
  Sex: Male
  Weight: 88.45 kg

DRUGS (3)
  1. IRIDINA [Concomitant]
     Indication: PROSTATE CANCER
     Dosage: EVERY 4-6 WEEKS
     Route: 042
     Dates: start: 201607
  2. ZYTIGA [Suspect]
     Active Substance: ABIRATERONE ACETATE
     Indication: PROSTATE CANCER
     Route: 048
     Dates: start: 201607
  3. PREDNISONE. [Concomitant]
     Active Substance: PREDNISONE
     Indication: PROSTATE CANCER
     Route: 065

REACTIONS (4)
  - Treatment noncompliance [Recovered/Resolved]
  - Prostate cancer metastatic [Unknown]
  - Hypoacusis [Unknown]
  - Body height decreased [Unknown]

NARRATIVE: CASE EVENT DATE: 20170921
